FAERS Safety Report 8965587 (Version 1)
Quarter: 2012Q4

REPORT INFORMATION
  Report Type: Spontaneous
  Country: US (occurrence: None)
  Receive Date: 20121212
  Receipt Date: 20121212
  Transmission Date: 20130627
  Serious: Yes (Disabling)
  Sender: FDA-Public Use
  Company Number: None

PATIENT
  Sex: Female
  Weight: 58.97 kg

DRUGS (1)
  1. KETOCONAZOLE [Suspect]
     Dosage: lot 96012 exp 01/2014
60 grams-15grams-15grams

REACTIONS (2)
  - Drug effect decreased [None]
  - Product container issue [None]
